FAERS Safety Report 18425699 (Version 1)
Quarter: 2020Q4

REPORT INFORMATION
  Report Type: Spontaneous
  Country: US (occurrence: US)
  Receive Date: 20201025
  Receipt Date: 20201025
  Transmission Date: 20210114
  Serious: Yes (Life-Threatening, Hospitalization)
  Sender: FDA-Public Use
  Company Number: None

PATIENT
  Age: 59 Year
  Sex: Male
  Weight: 95.4 kg

DRUGS (7)
  1. METFORMIN [Concomitant]
     Active Substance: METFORMIN HYDROCHLORIDE
  2. ZINC. [Concomitant]
     Active Substance: ZINC
  3. STATIN [Concomitant]
     Active Substance: UNSPECIFIED INGREDIENT
  4. VITAMIN C [Concomitant]
     Active Substance: ASCORBIC ACID
  5. JARDIANCE [Suspect]
     Active Substance: EMPAGLIFLOZIN
     Indication: TYPE 2 DIABETES MELLITUS
     Route: 048
  6. JANUVIA [Concomitant]
     Active Substance: SITAGLIPTIN PHOSPHATE
  7. VITAMIN D [Concomitant]
     Active Substance: VITAMIN D NOS

REACTIONS (4)
  - Near death experience [None]
  - Palpitations [None]
  - Panic attack [None]
  - Ketoacidosis [None]

NARRATIVE: CASE EVENT DATE: 20200525
